FAERS Safety Report 24157973 (Version 1)
Quarter: 2024Q3

REPORT INFORMATION
  Report Type: Spontaneous
  Country: HU (occurrence: HU)
  Receive Date: 20240731
  Receipt Date: 20240731
  Transmission Date: 20241017
  Serious: Yes (Other)
  Sender: MYLAN
  Company Number: HU-SANDOZ-SDZ2024HU064814

PATIENT
  Sex: Male
  Weight: 60 kg

DRUGS (1)
  1. LEVOFLOXACIN [Suspect]
     Active Substance: LEVOFLOXACIN
     Indication: Product used for unknown indication
     Dosage: UNK
     Route: 065

REACTIONS (21)
  - Exophthalmos [Unknown]
  - Suicidal ideation [Unknown]
  - Spinal pain [Unknown]
  - Torticollis [Unknown]
  - Bone pain [Unknown]
  - Sleep disorder [Unknown]
  - Gastrointestinal motility disorder [Unknown]
  - Eye pain [Unknown]
  - Intercostal neuralgia [Unknown]
  - Palpitations [Unknown]
  - Genital burning sensation [Unknown]
  - Weight decreased [Unknown]
  - Hyperintensity in brain deep nuclei [Unknown]
  - Illness [Unknown]
  - Photophobia [Unknown]
  - Fatigue [Unknown]
  - Hypoaesthesia [Unknown]
  - Idiopathic environmental intolerance [Unknown]
  - Hyperacusis [Unknown]
  - Pain in extremity [Unknown]
  - Pruritus [Unknown]
